FAERS Safety Report 7484175-6 (Version None)
Quarter: 2011Q2

REPORT INFORMATION
  Report Type: 
  Country: None (occurrence: None)
  Receive Date: 20110513
  Receipt Date: 20110513
  Transmission Date: 20111010
  Serious: Yes (Disabling, Other)
  Sender: FDA-Public Use
  Company Number: None

PATIENT
  Age: 30 Year
  Sex: Male
  Weight: 86.1834 kg

DRUGS (2)
  1. RISPERIDONE [Suspect]
     Indication: BIPOLAR DISORDER
     Dosage: 2MG TAB 1 EVERYDAY; 1 SHOT EVERY 2 WEEKS
  2. RISPERIDONE [Suspect]
     Indication: SCHIZOPHRENIA
     Dosage: 2MG TAB 1 EVERYDAY; 1 SHOT EVERY 2 WEEKS

REACTIONS (3)
  - STARING [None]
  - IMPAIRED DRIVING ABILITY [None]
  - EXCESSIVE EYE BLINKING [None]
